FAERS Safety Report 7349798-3 (Version None)
Quarter: 2011Q1

REPORT INFORMATION
  Report Type: 
  Country: None (occurrence: None)
  Receive Date: 20110309
  Receipt Date: 20110309
  Transmission Date: 20110831
  Serious: Yes (Hospitalization)
  Sender: FDA-Public Use
  Company Number: None

PATIENT
  Sex: Female
  Weight: 88.3 kg

DRUGS (5)
  1. NEULASTA [Suspect]
     Dosage: 24 MG
     Dates: end: 20110211
  2. CYCLOPHOSPHAMIDE [Suspect]
     Dosage: 4728 MG
     Dates: end: 20110210
  3. DOXORUBICIN HCL [Suspect]
     Dosage: 473 MG
     Dates: end: 20110210
  4. CARBOPLATIN [Suspect]
     Dosage: 2312 MG
     Dates: end: 20101210
  5. TAXOL [Suspect]
     Dosage: 1923 MG
     Dates: end: 20101223

REACTIONS (6)
  - DEHYDRATION [None]
  - NAUSEA [None]
  - HEPATITIS B [None]
  - DISEASE RECURRENCE [None]
  - VOMITING [None]
  - BACTERIAL TEST POSITIVE [None]
